FAERS Safety Report 24272829 (Version 2)
Quarter: 2024Q4

REPORT INFORMATION
  Report Type: Spontaneous
  Country: DE (occurrence: DE)
  Receive Date: 20240902
  Receipt Date: 20241015
  Transmission Date: 20250115
  Serious: Yes (Hospitalization, Other)
  Sender: AUROBINDO
  Company Number: DE-BENDALISSI-1539

PATIENT
  Age: 62 Year
  Sex: Female

DRUGS (4)
  1. CARBOPLATIN [Suspect]
     Active Substance: CARBOPLATIN
     Indication: Lung adenocarcinoma
     Dosage: UNK UNK, 3 CYCLICAL
     Route: 065
     Dates: start: 202204
  2. PEMETREXED [Suspect]
     Active Substance: PEMETREXED
     Indication: Lung adenocarcinoma
     Dosage: UNK, 3 CYCLICAL
     Route: 065
     Dates: start: 202204
  3. PEMBROLIZUMAB [Suspect]
     Active Substance: PEMBROLIZUMAB
     Indication: Lung adenocarcinoma
     Dosage: UNK (ADDED TO THE CHEMOTHERAPY WITH PEMETREXED AND CARBOPLATIN FROM THE 2ND CYCLE ONWARDS)
     Route: 065
  4. LEVOTHYROXINE [Concomitant]
     Active Substance: LEVOTHYROXINE
     Indication: Hypothyroidism
     Dosage: UNK
     Route: 065

REACTIONS (4)
  - Anaemia [Recovered/Resolved]
  - Disease progression [Recovered/Resolved]
  - Treatment delayed [Unknown]
  - Treatment failure [Unknown]
